FAERS Safety Report 11502041 (Version 1)
Quarter: 2015Q3

REPORT INFORMATION
  Report Type: Spontaneous
  Country: US (occurrence: US)
  Receive Date: 20150914
  Receipt Date: 20150914
  Transmission Date: 20151125
  Serious: Yes (Hospitalization)
  Sender: FDA-Public Use
  Company Number: US-BAXTER-2015BAX049324

PATIENT
  Age: 65 Year
  Sex: Male

DRUGS (1)
  1. 0.9% SODIUM CHLORIDE INJECTION [Suspect]
     Active Substance: SODIUM CHLORIDE
     Indication: HAEMODIALYSIS
     Route: 010

REACTIONS (1)
  - Bacteraemia [Recovering/Resolving]

NARRATIVE: CASE EVENT DATE: 20150804
